FAERS Safety Report 10903042 (Version 3)
Quarter: 2015Q2

REPORT INFORMATION
  Report Type: Spontaneous
  Country: RU (occurrence: RU)
  Receive Date: 20150311
  Receipt Date: 20150409
  Transmission Date: 20150821
  Serious: Yes (Hospitalization, Other)
  Sender: FDA-Public Use
  Company Number: RU-UCBSA-2015006398

PATIENT
  Age: 26 Year
  Sex: Female

DRUGS (3)
  1. KEPPRA [Suspect]
     Active Substance: LEVETIRACETAM
     Indication: EPILEPSY
     Dosage: 1000 MG, 3X/DAY (TID)
     Route: 048
     Dates: start: 20120217
  2. CONVULEX [Concomitant]
     Indication: EPILEPSY
     Dosage: 1000 MG, ONCE DAILY (QD)
     Route: 042
     Dates: start: 20150219, end: 20150222
  3. CONVULEX [Concomitant]
     Dosage: 500 MG, 2X/DAY (BID)
     Route: 048
     Dates: start: 20150223

REACTIONS (4)
  - Abortion spontaneous [Recovered/Resolved]
  - Seizure [Unknown]
  - Inappropriate schedule of drug administration [Unknown]
  - Pregnancy [Unknown]

NARRATIVE: CASE EVENT DATE: 20120217
